FAERS Safety Report 13709198 (Version 1)
Quarter: 2017Q2

REPORT INFORMATION
  Report Type: Spontaneous
  Country: US (occurrence: US)
  Receive Date: 20170630
  Receipt Date: 20170630
  Transmission Date: 20170830
  Serious: Yes (Other)
  Sender: FDA-Public Use
  Company Number: None

PATIENT
  Age: 74 Year
  Sex: Female
  Weight: 94.5 kg

DRUGS (4)
  1. LEVAQUIN [Suspect]
     Active Substance: LEVOFLOXACIN
     Indication: SINUS DISORDER
     Dosage: ?          OTHER STRENGTH:MG;QUANTITY:1 TABLET(S);?
     Route: 048
     Dates: start: 20170424, end: 20170517
  2. MODAFINIL. [Concomitant]
     Active Substance: MODAFINIL
  3. VITAMIN D [Concomitant]
     Active Substance: CHOLECALCIFEROL
  4. VALSARTAN. [Concomitant]
     Active Substance: VALSARTAN

REACTIONS (5)
  - Feeling abnormal [None]
  - Myalgia [None]
  - Joint range of motion decreased [None]
  - Pain in extremity [None]
  - Back pain [None]

NARRATIVE: CASE EVENT DATE: 20170513
